FAERS Safety Report 5523078-0 (Version None)
Quarter: 2007Q4

REPORT INFORMATION
  Report Type: 
  Country: None (occurrence: None)
  Receive Date: 20071121
  Receipt Date: 20071113
  Transmission Date: 20080405
  Serious: Yes (Other)
  Sender: FDA-Public Use
  Company Number: PHFR2007GB03108

PATIENT
  Sex: Female

DRUGS (2)
  1. STARLIX [Suspect]
     Indication: DIABETES MELLITUS
     Dosage: 120 MG, TID
     Route: 065
     Dates: start: 20030101
  2. METFORMIN HCL [Suspect]
     Dosage: 850 MG BID, + 500 MG OD
     Route: 065

REACTIONS (1)
  - RENAL DISORDER [None]
